FAERS Safety Report 23745371 (Version 1)
Quarter: 2024Q2

REPORT INFORMATION
  Report Type: Spontaneous
  Country: IN (occurrence: IN)
  Receive Date: 20240416
  Receipt Date: 20240416
  Transmission Date: 20240716
  Serious: Yes (Other)
  Sender: FDA-Public Use
  Company Number: IN-KOANAAP-SML-IN-2024-00300

PATIENT
  Age: 37 Year
  Sex: Male

DRUGS (1)
  1. IMATINIB [Suspect]
     Active Substance: IMATINIB
     Indication: Chronic myeloid leukaemia

REACTIONS (5)
  - Disease progression [Unknown]
  - Drug ineffective [Unknown]
  - Leukocytosis [Unknown]
  - Thrombocytopenia [Unknown]
  - Anaemia [Unknown]
